FAERS Safety Report 6384445-9 (Version None)
Quarter: 2009Q3

REPORT INFORMATION
  Report Type: 
  Country: None (occurrence: None)
  Receive Date: 20090929
  Receipt Date: 20090914
  Transmission Date: 20100115
  Serious: Yes (Hospitalization)
  Sender: FDA-Public Use
  Company Number: 09-001495

PATIENT
  Age: 24 Month
  Sex: Male
  Weight: 12 kg

DRUGS (1)
  1. DURICEF [Suspect]
     Dosage: 100 ML, ORAL
     Route: 048
     Dates: start: 20090807

REACTIONS (2)
  - ACCIDENTAL DRUG INTAKE BY CHILD [None]
  - VOMITING [None]
